FAERS Safety Report 7030103-7 (Version None)
Quarter: 2010Q4

REPORT INFORMATION
  Report Type: 
  Country: None (occurrence: None)
  Receive Date: 20101006
  Receipt Date: 20100930
  Transmission Date: 20110411
  Serious: Yes (Other)
  Sender: FDA-Public Use
  Company Number: DE-PFIZER INC-2010124554

PATIENT
  Age: 62 Year
  Sex: Male

DRUGS (3)
  1. SORTIS [Suspect]
     Dosage: 40 MG/DAY
     Route: 048
     Dates: start: 20010101
  2. RAMIPRIL [Concomitant]
     Dosage: UNK
  3. CLOPIDOGREL [Concomitant]
     Dosage: UNK

REACTIONS (1)
  - HYPERTHYROIDISM [None]
